FAERS Safety Report 20884589 (Version 2)
Quarter: 2022Q3

REPORT INFORMATION
  Report Type: Spontaneous
  Country: US (occurrence: US)
  Receive Date: 20220527
  Receipt Date: 20220708
  Transmission Date: 20221026
  Serious: No
  Sender: FDA-Public Use
  Company Number: US-PFIZER INC-202200760929

PATIENT
  Age: 72 Year
  Sex: Male
  Weight: 59.9 kg

DRUGS (1)
  1. DOXYCYCLINE HYCLATE [Suspect]
     Active Substance: DOXYCYCLINE HYCLATE
     Indication: Blepharitis
     Dosage: UNK

REACTIONS (1)
  - Drug ineffective [Unknown]
